FAERS Safety Report 15889515 (Version 3)
Quarter: 2019Q1

REPORT INFORMATION
  Report Type: Report from Study
  Country: US (occurrence: US)
  Receive Date: 20190130
  Receipt Date: 20190212
  Transmission Date: 20190417
  Serious: Yes (Disabling, Other)
  Sender: FDA-Public Use
  Company Number: US-AMGEN-USASL2018182929

PATIENT
  Age: 72 Year
  Sex: Female
  Weight: 88.44 kg

DRUGS (2)
  1. REPATHA [Suspect]
     Active Substance: EVOLOCUMAB
     Indication: TYPE IIA HYPERLIPIDAEMIA
     Dosage: 140 MG, Q2WK
     Route: 058
     Dates: start: 20180927
  2. REPATHA [Suspect]
     Active Substance: EVOLOCUMAB
     Indication: BLOOD CHOLESTEROL INCREASED

REACTIONS (13)
  - Myalgia [Not Recovered/Not Resolved]
  - Oropharyngeal pain [Unknown]
  - Pharyngeal oedema [Unknown]
  - Pain [Unknown]
  - Muscle spasms [Unknown]
  - Peripheral swelling [Not Recovered/Not Resolved]
  - Dyspnoea [Unknown]
  - Oral pain [Unknown]
  - Chest discomfort [Unknown]
  - Throat tightness [Unknown]
  - Bone pain [Unknown]
  - Musculoskeletal pain [Not Recovered/Not Resolved]
  - Stomatitis [Unknown]

NARRATIVE: CASE EVENT DATE: 201812
